FAERS Safety Report 8572796-9 (Version None)
Quarter: 2012Q3

REPORT INFORMATION
  Report Type: 
  Country: None (occurrence: None)
  Receive Date: 20120806
  Receipt Date: 20120731
  Transmission Date: 20120928
  Serious: Yes (Death)
  Sender: FDA-Public Use
  Company Number: PH-ASTRAZENECA-2012SE54745

PATIENT
  Age: 11 Year
  Sex: Male

DRUGS (1)
  1. SENSORCAINE [Suspect]
     Indication: SPINAL ANAESTHESIA
     Route: 037

REACTIONS (1)
  - DEATH [None]
